FAERS Safety Report 9771105 (Version 3)
Quarter: 2014Q3

REPORT INFORMATION
  Report Type: Spontaneous
  Country: US (occurrence: US)
  Receive Date: 20131218
  Receipt Date: 20140827
  Transmission Date: 20150326
  Serious: Yes (Death, Hospitalization, Disabling, Other)
  Sender: FDA-Public Use
  Company Number: US-MERCK-1312USA008203

PATIENT
  Sex: Male
  Weight: 92.52 kg

DRUGS (2)
  1. JANUVIA [Suspect]
     Active Substance: SITAGLIPTIN PHOSPHATE
     Indication: TYPE 2 DIABETES MELLITUS
     Dosage: 100 MG, QD
     Route: 048
     Dates: start: 20070321
  2. GLUCOPHAGE [Concomitant]
     Active Substance: METFORMIN HYDROCHLORIDE
     Indication: TYPE 2 DIABETES MELLITUS
     Dosage: 1000, QD
     Dates: start: 20050408

REACTIONS (32)
  - Gallbladder disorder [Unknown]
  - Gallbladder disorder [Unknown]
  - Pleural effusion [Unknown]
  - Knee operation [Unknown]
  - Back pain [Unknown]
  - Pancreatic carcinoma metastatic [Fatal]
  - Pancreatitis acute [Unknown]
  - Oedema peripheral [Unknown]
  - Sepsis [Unknown]
  - Bile duct stenosis [Unknown]
  - Central venous catheterisation [Unknown]
  - Hypogonadism [Unknown]
  - Bronchitis [Unknown]
  - Malignant pleural effusion [Unknown]
  - Skin ulcer [Unknown]
  - Pain in extremity [Unknown]
  - Respiratory failure [Unknown]
  - Atelectasis [Unknown]
  - Pleural effusion [Unknown]
  - Bile duct obstruction [Unknown]
  - Bile duct stent insertion [Unknown]
  - Ascites [Unknown]
  - Pulmonary mass [Unknown]
  - Pain in extremity [Unknown]
  - Limb operation [Unknown]
  - Vitamin D deficiency [Unknown]
  - Laparoscopy [Unknown]
  - Radiotherapy [Unknown]
  - Peripheral swelling [Unknown]
  - Bladder neck obstruction [Unknown]
  - Pneumonia [Unknown]
  - Faeces discoloured [Unknown]

NARRATIVE: CASE EVENT DATE: 201101
